FAERS Safety Report 9966354 (Version 1)
Quarter: 2014Q1

REPORT INFORMATION
  Report Type: Report from Study
  Country: US (occurrence: US)
  Receive Date: 20140305
  Receipt Date: 20140305
  Transmission Date: 20141002
  Serious: No
  Sender: FDA-Public Use
  Company Number: US-ABBVIE-13P-163-1121082-00

PATIENT
  Age: 24 Year
  Sex: Male

DRUGS (4)
  1. HUMIRA [Suspect]
     Indication: CROHN^S DISEASE
     Dates: start: 20130615
  2. HUMIRA [Suspect]
     Dates: start: 20130629
  3. HUMIRA [Suspect]
     Dates: start: 20130713
  4. MERCAPTOPURINE [Concomitant]
     Indication: CROHN^S DISEASE

REACTIONS (8)
  - Malaise [Recovered/Resolved]
  - Injection site bruising [Recovered/Resolved]
  - Rash erythematous [Recovered/Resolved]
  - Abdominal pain [Recovered/Resolved]
  - Wrong technique in drug usage process [Unknown]
  - Incorrect dose administered [Unknown]
  - Injection site pain [Recovered/Resolved]
  - Anxiety [Recovered/Resolved]
